FAERS Safety Report 7112025-6 (Version None)
Quarter: 2010Q4

REPORT INFORMATION
  Report Type: 
  Country: None (occurrence: None)
  Receive Date: 20101119
  Receipt Date: 20101117
  Transmission Date: 20110411
  Serious: Yes (Other)
  Sender: FDA-Public Use
  Company Number: US-PFIZER INC-2010151344

PATIENT
  Sex: Male

DRUGS (2)
  1. GEODON [Suspect]
     Indication: PARANOIA
     Dosage: 80 MG, 2X/DAY
     Dates: start: 20091001
  2. RESTORIL [Concomitant]
     Indication: SLEEP DISORDER
     Dosage: 30 MG, UNK
     Route: 048

REACTIONS (4)
  - CONVULSION [None]
  - TARDIVE DYSKINESIA [None]
  - WEIGHT INCREASED [None]
  - WITHDRAWAL SYNDROME [None]
